FAERS Safety Report 9980881 (Version 2)
Quarter: 2015Q3

REPORT INFORMATION
  Report Type: Spontaneous
  Country: US (occurrence: US)
  Receive Date: 20140307
  Receipt Date: 20150806
  Transmission Date: 20151125
  Serious: Yes (Hospitalization)
  Sender: FDA-Public Use
  Company Number: US-GLAXOSMITHKLINE-A1015830A

PATIENT
  Sex: Male

DRUGS (2)
  1. REQUIP [Suspect]
     Active Substance: ROPINIROLE HYDROCHLORIDE
     Indication: PRODUCT USED FOR UNKNOWN INDICATION
     Route: 048
  2. ROPINIROLE HYDROCHLORIDE. [Suspect]
     Active Substance: ROPINIROLE HYDROCHLORIDE
     Indication: PRODUCT USED FOR UNKNOWN INDICATION
     Dosage: 1 MG, UNK
     Dates: start: 20120115, end: 20120305

REACTIONS (8)
  - Abnormal behaviour [Unknown]
  - Drug dispensing error [Unknown]
  - Headache [Unknown]
  - Vomiting [Unknown]
  - Aggression [Unknown]
  - Gastric disorder [Unknown]
  - Mental disorder [Unknown]
  - Disturbance in attention [Unknown]
